FAERS Safety Report 4320813-4 (Version None)
Quarter: 2004Q1

REPORT INFORMATION
  Report Type: 
  Country: None (occurrence: None)
  Receive Date: 20040318
  Receipt Date: 20040312
  Transmission Date: 20041129
  Serious: Yes (Hospitalization, Other)
  Sender: FDA-Public Use
  Company Number: FRWYE596323FEB04

PATIENT
  Age: 25 Year
  Sex: Female

DRUGS (2)
  1. EFFEXOR [Suspect]
     Indication: MAJOR DEPRESSION
     Dosage: ABOVE 250 MG DAILY; ORAL
     Route: 048
     Dates: start: 20031001, end: 20030101
  2. ANXIOLYTICS [Concomitant]

REACTIONS (2)
  - CONDITION AGGRAVATED [None]
  - SUICIDAL IDEATION [None]
